FAERS Safety Report 10240058 (Version 2)
Quarter: 2014Q2

REPORT INFORMATION
  Report Type: Spontaneous
  Country: US (occurrence: US)
  Receive Date: 20140617
  Receipt Date: 20140617
  Transmission Date: 20141212
  Serious: No
  Sender: FDA-Public Use
  Company Number: 2014SP001571

PATIENT
  Sex: Female

DRUGS (11)
  1. DOXYCYCLINE [Suspect]
     Indication: PRODUCT USED FOR UNKNOWN INDICATION
  2. ERYTHROMYCIN [Suspect]
     Indication: PRODUCT USED FOR UNKNOWN INDICATION
  3. CIPROFLOXACIN [Suspect]
     Indication: PRODUCT USED FOR UNKNOWN INDICATION
  4. LORACARBEF [Suspect]
  5. MUPIROCIN [Suspect]
  6. ANASTROZOLE [Concomitant]
  7. ATORVASTATIN CALCIUM [Concomitant]
  8. LEVOTHYROXINE [Concomitant]
  9. AMLODIPINE [Concomitant]
  10. DOXAZOSIN MESILATE [Concomitant]
  11. GLIMEPIRIDE [Concomitant]

REACTIONS (1)
  - Drug hypersensitivity [Unknown]
